FAERS Safety Report 14454641 (Version 1)
Quarter: 2018Q1

REPORT INFORMATION
  Report Type: Report from Study
  Country: US (occurrence: US)
  Receive Date: 20180129
  Receipt Date: 20180129
  Transmission Date: 20180509
  Serious: Yes (Hospitalization, Other)
  Sender: FDA-Public Use
  Company Number: US-SHIRE-US201802365

PATIENT
  Sex: Female
  Weight: 56.96 kg

DRUGS (1)
  1. GATTEX [Suspect]
     Active Substance: TEDUGLUTIDE\WATER
     Indication: SHORT-BOWEL SYNDROME
     Dosage: 0.285 ML, 1X/DAY:QD
     Route: 058

REACTIONS (2)
  - Renal failure [Unknown]
  - Incorrect dose administered [Unknown]
